FAERS Safety Report 20630208 (Version 4)
Quarter: 2022Q3

REPORT INFORMATION
  Report Type: Spontaneous
  Country: JP (occurrence: JP)
  Receive Date: 20220324
  Receipt Date: 20220715
  Transmission Date: 20221026
  Serious: Yes (Other)
  Sender: FDA-Public Use
  Company Number: JP-GLAXOSMITHKLINE-JP2022JPN048821

PATIENT

DRUGS (2)
  1. SOTROVIMAB [Suspect]
     Active Substance: SOTROVIMAB
     Indication: COVID-19
     Dosage: 500 MG/100 ML/30 MIN
     Dates: start: 20220131, end: 20220131
  2. ZYPREXA ZYDIS TABLET [Concomitant]
     Indication: Schizophrenia
     Dosage: 10 MG, QD, AT BEDTIME

REACTIONS (7)
  - Anaphylactic reaction [Unknown]
  - Heart rate increased [Unknown]
  - Rash [Recovered/Resolved]
  - Erythema [Unknown]
  - Wheezing [Unknown]
  - Pyrexia [Recovered/Resolved]
  - Feeling hot [Unknown]

NARRATIVE: CASE EVENT DATE: 20220131
